FAERS Safety Report 5012387-X (Version None)
Quarter: 2006Q2

REPORT INFORMATION
  Report Type: 
  Country: None (occurrence: None)
  Receive Date: 20060414
  Receipt Date: 20060120
  Transmission Date: 20061013
  Serious: No
  Sender: FDA-Public Use
  Company Number: 2006SP000354

PATIENT
  Age: 52 Year
  Sex: Male
  Weight: 76.2043 kg

DRUGS (6)
  1. LUNESTA [Suspect]
     Indication: INSOMNIA
     Dosage: 2 MG;  HS; ORAL
     Route: 048
     Dates: start: 20060114
  2. ZOMAX [Concomitant]
  3. VALIUM [Concomitant]
  4. NEXIUM [Concomitant]
  5. XANAX [Concomitant]
  6. MORPHINE [Concomitant]

REACTIONS (2)
  - DRUG INEFFECTIVE [None]
  - INSOMNIA [None]
